FAERS Safety Report 20491432 (Version 2)
Quarter: 2022Q1

REPORT INFORMATION
  Report Type: Spontaneous
  Country: UY (occurrence: UY)
  Receive Date: 20220218
  Receipt Date: 20220329
  Transmission Date: 20220424
  Serious: No
  Sender: FDA-Public Use
  Company Number: UY-PFIZER INC-202200181061

PATIENT
  Age: 17 Year
  Sex: Male

DRUGS (1)
  1. GENOTROPIN [Suspect]
     Active Substance: SOMATROPIN
     Indication: Growth hormone deficiency
     Dosage: 1.5 TO 2 MG, 7 TIMES PER WEEK
     Dates: start: 20191119

REACTIONS (2)
  - Device information output issue [Not Recovered/Not Resolved]
  - Device mechanical issue [Not Recovered/Not Resolved]
